FAERS Safety Report 25126882 (Version 1)
Quarter: 2025Q1

REPORT INFORMATION
  Report Type: Spontaneous
  Country: DE (occurrence: DE)
  Receive Date: 20250327
  Receipt Date: 20250327
  Transmission Date: 20250408
  Serious: Yes (Other)
  Sender: JOHNSON AND JOHNSON
  Company Number: DE-ABBVIE-6182386

PATIENT
  Sex: Female

DRUGS (4)
  1. STELARA [Suspect]
     Active Substance: USTEKINUMAB
     Indication: Crohn^s disease
     Route: 065
     Dates: start: 202208, end: 202306
  2. HUMIRA [Suspect]
     Active Substance: ADALIMUMAB
     Indication: Crohn^s disease
     Route: 058
     Dates: start: 2014, end: 202004
  3. HUMIRA [Suspect]
     Active Substance: ADALIMUMAB
     Route: 058
     Dates: start: 202010
  4. SULFASALAZINE [Concomitant]
     Active Substance: SULFASALAZINE
     Indication: Product used for unknown indication

REACTIONS (10)
  - Inflammatory bowel disease [Unknown]
  - Epidermolysis bullosa [Unknown]
  - Crohn^s disease [Unknown]
  - Arthralgia [Recovered/Resolved]
  - Arthralgia [Unknown]
  - Maternal exposure during pregnancy [Unknown]
  - Myalgia [Unknown]
  - Back pain [Unknown]
  - Arthritis [Unknown]
  - Antineutrophil cytoplasmic antibody positive [Unknown]

NARRATIVE: CASE EVENT DATE: 20201001
